FAERS Safety Report 8606039-4 (Version None)
Quarter: 2012Q3

REPORT INFORMATION
  Report Type: 
  Country: None (occurrence: None)
  Receive Date: 20120820
  Receipt Date: 19910722
  Transmission Date: 20120928
  Serious: Yes (Hospitalization)
  Sender: FDA-Public Use
  Company Number: US-ROCHE-1099824

PATIENT
  Age: 50 Year
  Sex: Male

DRUGS (5)
  1. ASPIRIN [Concomitant]
  2. HEPARIN [Concomitant]
  3. ACTIVASE [Suspect]
     Indication: ACUTE MYOCARDIAL INFARCTION
     Dates: start: 19901118
  4. TENORMIN [Concomitant]
  5. ACTIVASE [Suspect]
     Dates: start: 19901118

REACTIONS (13)
  - HYPOTENSION [None]
  - PURPURA [None]
  - CHEST DISCOMFORT [None]
  - CARDIOMEGALY [None]
  - PULMONARY OEDEMA [None]
  - HAEMATEMESIS [None]
  - VENTRICULAR EXTRASYSTOLES [None]
  - NAUSEA [None]
  - PETECHIAE [None]
  - OXYGEN SATURATION DECREASED [None]
  - VOMITING [None]
  - CHEST PAIN [None]
  - HAEMATURIA [None]
